FAERS Safety Report 5051811-3 (Version None)
Quarter: 2006Q3

REPORT INFORMATION
  Report Type: 
  Country: None (occurrence: None)
  Receive Date: 20060712
  Receipt Date: 20060712
  Transmission Date: 20061208
  Serious: Yes (Hospitalization)
  Sender: FDA-Public Use
  Company Number: None

PATIENT
  Sex: Female
  Weight: 68.9467 kg

DRUGS (12)
  1. LAMOTRIGINE [Suspect]
     Indication: MOOD ALTERED
     Dosage: 100 MG BID PO
     Route: 048
     Dates: start: 20051207, end: 20051231
  2. LEVOFLOXACIN [Suspect]
     Indication: UPPER RESPIRATORY TRACT INFECTION
     Dosage: 500 MG QD PO
     Route: 048
     Dates: start: 20051230, end: 20051231
  3. LEVOTHYROXINE SODIUM [Concomitant]
  4. DIPHENHYDRAMINE HCL [Concomitant]
  5. PSYLLIUM [Concomitant]
  6. DOCUSATE SODIUM [Concomitant]
  7. RISPERIDONE [Concomitant]
  8. CLONAZEPAM [Concomitant]
  9. BENZTROPINE MESYLATE [Concomitant]
  10. POTASSIUM CHLORIDE [Concomitant]
  11. ACETAMINOPHEN [Concomitant]
  12. TOLNAFTATE [Concomitant]

REACTIONS (2)
  - HEPATITIS [None]
  - UPPER RESPIRATORY TRACT INFECTION [None]
